FAERS Safety Report 10366406 (Version 2)
Quarter: 2014Q4

REPORT INFORMATION
  Report Type: Spontaneous
  Country: US (occurrence: US)
  Receive Date: 20140806
  Receipt Date: 20141001
  Transmission Date: 20150528
  Serious: Yes (Death)
  Sender: FDA-Public Use
  Company Number: US-BAYER-2014-111600

PATIENT
  Age: 83 Year
  Sex: Male
  Weight: 91 kg

DRUGS (1)
  1. BACTINE LIQUID [Suspect]
     Active Substance: BENZALKONIUM CHLORIDE\LIDOCAINE
     Indication: SKIN ABRASION
     Dosage: 1 DF, PRN
     Route: 061

REACTIONS (1)
  - Brain neoplasm [Fatal]
